FAERS Safety Report 9308468 (Version 6)
Quarter: 2014Q2

REPORT INFORMATION
  Report Type: Spontaneous
  Country: JP (occurrence: JP)
  Receive Date: 20130524
  Receipt Date: 20140411
  Transmission Date: 20141212
  Serious: Yes (Other)
  Sender: FDA-Public Use
  Company Number: JP-AMGEN-JPNSP2013036619

PATIENT
  Age: 65 Year
  Sex: Male
  Weight: 58 kg

DRUGS (14)
  1. RANMARK [Suspect]
     Indication: METASTASES TO BONE
     Dosage: 120 MG, QD
     Route: 042
     Dates: start: 20120522, end: 20130326
  2. AVASTIN                            /00848101/ [Suspect]
     Indication: POTENTIATING DRUG INTERACTION
     Dosage: 300 MG, QD
     Route: 041
     Dates: start: 20130507, end: 20130507
  3. MS CONTIN [Concomitant]
     Indication: CANCER PAIN
     Dosage: 10 MG, BID
     Route: 048
     Dates: start: 20130507
  4. OPSO [Concomitant]
     Indication: CANCER PAIN
     Dosage: 5 MG, AS NECESSARY
     Route: 048
     Dates: start: 20130507
  5. LOBU [Concomitant]
     Indication: CANCER PAIN
     Dosage: 10 MG, BID
     Route: 048
     Dates: start: 20130507
  6. TAKEPRON [Concomitant]
     Indication: GASTRIC ULCER
     Dosage: 15 MG, QD
     Route: 048
     Dates: start: 20130507
  7. HIRUDOID                           /00723702/ [Concomitant]
     Indication: DRY SKIN
     Dosage: UNKNOWN
     Route: 050
     Dates: start: 20130507
  8. DECADRON                           /00016001/ [Concomitant]
     Indication: PROPHYLAXIS
     Dosage: 6.6 MG, QD
     Route: 041
     Dates: start: 20130507, end: 20130509
  9. CAMPTO [Concomitant]
     Indication: NEOPLASM MALIGNANT
     Dosage: 85 MG, QD
     Route: 041
     Dates: start: 20130507, end: 20130507
  10. TS-1 [Concomitant]
     Indication: NEOPLASM MALIGNANT
     Dosage: 60 MG, BID, MORNING(20), EVENING(40)
     Route: 048
     Dates: start: 20130507, end: 20130521
  11. EMEND                              /01627301/ [Concomitant]
     Indication: PROPHYLAXIS
     Dosage: 125 MG, QD
     Route: 048
     Dates: start: 20130508
  12. PRIMPERAN [Concomitant]
     Indication: NAUSEA
     Dosage: 5 MG, TID
     Route: 048
     Dates: start: 20130507, end: 20130510
  13. MAGLAX [Concomitant]
     Indication: CONSTIPATION PROPHYLAXIS
     Dosage: 330 MG, TID
     Route: 048
     Dates: start: 20130507, end: 20130510
  14. ALOXI [Concomitant]
     Indication: PROPHYLAXIS
     Dosage: 0.75 MG, QD
     Route: 041
     Dates: start: 20130507, end: 20130507

REACTIONS (1)
  - Exposed bone in jaw [Not Recovered/Not Resolved]
